FAERS Safety Report 4573968-0 (Version None)
Quarter: 2005Q1

REPORT INFORMATION
  Report Type: 
  Country: None (occurrence: None)
  Receive Date: 20050204
  Receipt Date: 20050120
  Transmission Date: 20050727
  Serious: Yes (Hospitalization)
  Sender: FDA-Public Use
  Company Number: 8008368

PATIENT
  Age: 49 Year
  Sex: Female

DRUGS (1)
  1. KEPPRA [Suspect]
     Indication: CONVULSION
     Dosage: PO; A FEW YEARS
     Route: 048

REACTIONS (8)
  - DYSPHAGIA [None]
  - GASTRIC ULCER [None]
  - GASTRITIS [None]
  - GASTROINTESTINAL DISORDER [None]
  - HAEMORRHAGE [None]
  - INSOMNIA [None]
  - IRON DEFICIENCY ANAEMIA [None]
  - SMALL INTESTINE ULCER [None]
